FAERS Safety Report 5168892-9 (Version None)
Quarter: 2006Q4

REPORT INFORMATION
  Report Type: 
  Country: None (occurrence: None)
  Receive Date: 20061206
  Receipt Date: 20061206
  Transmission Date: 20070319
  Serious: Yes (Hospitalization)
  Sender: FDA-Public Use
  Company Number: None

PATIENT
  Age: 86 Year
  Sex: Male
  Weight: 78.9 kg

DRUGS (1)
  1. CARBIDOPA AND LEVODOPA [Suspect]
     Indication: PARKINSON'S DISEASE
     Dosage: 25/100 MG PO QID
     Route: 048
     Dates: start: 19990604

REACTIONS (2)
  - ORTHOSTATIC HYPOTENSION [None]
  - PRESYNCOPE [None]
